FAERS Safety Report 14554791 (Version 2)
Quarter: 2018Q1

REPORT INFORMATION
  Report Type: Spontaneous
  Country: AR (occurrence: AR)
  Receive Date: 20180220
  Receipt Date: 20180301
  Transmission Date: 20180509
  Serious: Yes (Death, Other)
  Sender: FDA-Public Use
  Company Number: AR-RETROPHIN, INC.-2018RTN00005

PATIENT
  Sex: Female

DRUGS (1)
  1. CHOLBAM [Suspect]
     Active Substance: CHOLIC ACID
     Indication: INBORN ERROR IN PRIMARY BILE ACID SYNTHESIS
     Dosage: 15 MG/KG, 1X/DAY
     Dates: start: 201801, end: 201802

REACTIONS (2)
  - Septic shock [Fatal]
  - Liver disorder [Unknown]

NARRATIVE: CASE EVENT DATE: 2018
